FAERS Safety Report 8247436-9 (Version None)
Quarter: 2012Q1

REPORT INFORMATION
  Report Type: 
  Country: None (occurrence: None)
  Receive Date: 20120330
  Receipt Date: 20120320
  Transmission Date: 20120608
  Serious: Yes (Hospitalization)
  Sender: FDA-Public Use
  Company Number: NL-ROCHE-1051260

PATIENT
  Sex: Female
  Weight: 77 kg

DRUGS (2)
  1. LOMUSTINE [Suspect]
     Indication: BRAIN NEOPLASM MALIGNANT
     Route: 065
     Dates: start: 20120308
  2. AVASTIN [Suspect]
     Indication: BRAIN NEOPLASM MALIGNANT
     Route: 065
     Dates: start: 20120308

REACTIONS (3)
  - GENERAL PHYSICAL HEALTH DETERIORATION [None]
  - VOMITING [None]
  - NAUSEA [None]
